FAERS Safety Report 8350512-3 (Version None)
Quarter: 2012Q2

REPORT INFORMATION
  Report Type: 
  Country: None (occurrence: None)
  Receive Date: 20120510
  Receipt Date: 20120503
  Transmission Date: 20120825
  Serious: Yes (Hospitalization)
  Sender: FDA-Public Use
  Company Number: US-BAYER-2012-044447

PATIENT
  Age: 30 Year
  Sex: Female
  Weight: 53.968 kg

DRUGS (12)
  1. YAZ [Suspect]
     Indication: CONTRACEPTION
     Dosage: UNK
     Dates: start: 20080125, end: 20100407
  2. YAZ [Suspect]
     Indication: ACNE
  3. ZOMIG [Concomitant]
     Indication: HEADACHE
     Dosage: 5 MG, UNK
  4. YAZ [Suspect]
     Indication: PREMENSTRUAL SYNDROME
  5. MULTI-VITAMINS [Concomitant]
     Dosage: UNK
     Dates: start: 20100215
  6. FOLIC ACID [Concomitant]
     Dosage: 1 MG, UNK
     Dates: start: 20100215
  7. TREXIMET [Concomitant]
     Indication: MIGRAINE
     Dosage: 85-500 MG AT ONSET OF HEADACHE
  8. YAZ [Suspect]
  9. TOPAMAX [Concomitant]
     Indication: MIGRAINE
     Dosage: 100 MG, UNK
     Dates: start: 20070810, end: 20100215
  10. BENTYL [Concomitant]
     Dosage: 20 MG, UNK
     Route: 030
  11. RELPAX [Concomitant]
     Indication: MIGRAINE
     Dosage: 40 MG, AT ONSET OF HEADACHE
  12. LIDOCAINE [Concomitant]
     Indication: LACERATION
     Dosage: UNK
     Dates: start: 20100330

REACTIONS (3)
  - PULMONARY EMBOLISM [None]
  - CHEST PAIN [None]
  - ABDOMINAL PAIN [None]
